FAERS Safety Report 8548307-0 (Version None)
Quarter: 2012Q3

REPORT INFORMATION
  Report Type: 
  Country: None (occurrence: None)
  Receive Date: 20120719
  Receipt Date: 20120719
  Transmission Date: 20120928
  Serious: No
  Sender: FDA-Public Use
  Company Number: None

PATIENT

DRUGS (1)
  1. NOVOLOG [Suspect]
     Indication: DIABETES MELLITUS
     Dosage: 3X + DAY
     Dates: start: 20111230

REACTIONS (5)
  - INCORRECT DOSE ADMINISTERED BY DEVICE [None]
  - LOSS OF CONSCIOUSNESS [None]
  - BLOOD GLUCOSE DECREASED [None]
  - ROAD TRAFFIC ACCIDENT [None]
  - DEVICE MALFUNCTION [None]
